FAERS Safety Report 4728910-6 (Version None)
Quarter: 2005Q3

REPORT INFORMATION
  Report Type: 
  Country: None (occurrence: None)
  Receive Date: 20050729
  Receipt Date: 20050509
  Transmission Date: 20060218
  Serious: No
  Sender: FDA-Public Use
  Company Number: US-GLAXOSMITHKLINE-A0557867A

PATIENT
  Age: 19 Year
  Sex: Female

DRUGS (4)
  1. IMITREX [Suspect]
     Indication: MIGRAINE
     Dosage: 100MG SINGLE DOSE
     Route: 048
     Dates: start: 20050509, end: 20050509
  2. ZYRTEC [Concomitant]
  3. AMITRIPTYLINE HCL [Concomitant]
  4. ALBUTEROL [Concomitant]

REACTIONS (2)
  - SWELLING FACE [None]
  - URTICARIA [None]
